FAERS Safety Report 16694318 (Version 1)
Quarter: 2019Q3

REPORT INFORMATION
  Report Type: Spontaneous
  Country: US (occurrence: US)
  Receive Date: 20190812
  Receipt Date: 20190812
  Transmission Date: 20191004
  Serious: No
  Sender: FDA-Public Use
  Company Number: US-ELI_LILLY_AND_COMPANY-US201907009935

PATIENT
  Sex: Female

DRUGS (4)
  1. EMGALITY [Suspect]
     Active Substance: GALCANEZUMAB-GNLM
     Indication: PRODUCT USED FOR UNKNOWN INDICATION
     Dosage: UNK, UNKNOWN
     Route: 065
     Dates: start: 20190318
  2. ERENUMAB [Suspect]
     Active Substance: ERENUMAB
     Dosage: 140 MG, MONTHLY (1/M)
     Route: 065
  3. ERENUMAB [Suspect]
     Active Substance: ERENUMAB
     Indication: PRODUCT USED FOR UNKNOWN INDICATION
     Dosage: 70 MG, MONTHLY (1/M)
     Route: 065
  4. FREMANEZUMAB [Suspect]
     Active Substance: FREMANEZUMAB
     Indication: PRODUCT USED FOR UNKNOWN INDICATION
     Dosage: UNK, MONTHLY (1/M)
     Dates: start: 20190226

REACTIONS (10)
  - Myalgia [Unknown]
  - Arthralgia [Unknown]
  - Crepitations [Unknown]
  - Pain [Unknown]
  - Oedema [Unknown]
  - Rash pruritic [Unknown]
  - Irritable bowel syndrome [Unknown]
  - Constipation [Unknown]
  - Neuralgia [Unknown]
  - Fatigue [Unknown]
